FAERS Safety Report 4336056-4 (Version None)
Quarter: 2004Q1

REPORT INFORMATION
  Report Type: 
  Country: None (occurrence: None)
  Receive Date: 20040326
  Receipt Date: 20031204
  Transmission Date: 20041129
  Serious: Yes (Hospitalization)
  Sender: FDA-Public Use
  Company Number: US-JNJFOC-20031000817

PATIENT
  Age: 78 Year
  Sex: Female

DRUGS (5)
  1. REMINYL [Suspect]
     Indication: DEMENTIA ALZHEIMER'S TYPE
     Dosage: 4 MG, 2 IN 1 DAY, ORAL
     Route: 048
     Dates: start: 20030826, end: 20030901
  2. HORMONE REPLACEMENT THERAPY (ANDROGENS AND FEMALE SEX HORMONES IN COMB [Concomitant]
  3. VITAMINS (VITAMINS) UNSPECIFIED [Concomitant]
  4. WATER PILL (DIURETICS) UNSPECIFIED [Concomitant]
  5. NERVE PILL (ALL OTHER THERAPEUTIC PRODUCTS) UNSPECIFIED [Concomitant]

REACTIONS (3)
  - ANAEMIA [None]
  - OESOPHAGITIS [None]
  - UPPER GASTROINTESTINAL HAEMORRHAGE [None]
